FAERS Safety Report 10652489 (Version 1)
Quarter: 2014Q4

REPORT INFORMATION
  Report Type: Spontaneous
  Country: US (occurrence: None)
  Receive Date: 20141212
  Receipt Date: 20141212
  Transmission Date: 20150529
  Serious: No
  Sender: FDA-Public Use
  Company Number: None

PATIENT
  Age: 73 Year
  Sex: Female
  Weight: 74.84 kg

DRUGS (4)
  1. ATIVAN [Concomitant]
     Active Substance: LORAZEPAM
  2. ADVIL [Concomitant]
     Active Substance: IBUPROFEN
  3. PEPSID.... [Concomitant]
  4. LEVOFLOXACIN. [Suspect]
     Active Substance: LEVOFLOXACIN
     Indication: BACTERIAL INFECTION
     Dosage: BY MOUTH
     Dates: start: 20141117, end: 20141121

REACTIONS (2)
  - Tendon pain [None]
  - Arthralgia [None]

NARRATIVE: CASE EVENT DATE: 20141119
